FAERS Safety Report 16357755 (Version 2)
Quarter: 2019Q2

REPORT INFORMATION
  Report Type: Report from Study
  Country: NZ (occurrence: NZ)
  Receive Date: 20190527
  Receipt Date: 20190613
  Transmission Date: 20190711
  Serious: Yes (Death, Hospitalization, Disabling)
  Sender: FDA-Public Use
  Company Number: PHHY2019NZ120972

PATIENT
  Age: 51 Year
  Sex: Male

DRUGS (1)
  1. OMNITROPE [Suspect]
     Active Substance: SOMATROPIN
     Indication: GROWTH HORMONE DEFICIENCY
     Dosage: 0.2 MG, 5 DAYS/WEEK
     Route: 065
     Dates: end: 20180620

REACTIONS (6)
  - Post procedural complication [Fatal]
  - Cerebral radiation injury [Fatal]
  - Hypopituitarism [Fatal]
  - Pneumonia aspiration [Fatal]
  - CNS germinoma [Fatal]
  - Craniocerebral injury [Fatal]

NARRATIVE: CASE EVENT DATE: 20180728
